FAERS Safety Report 24343277 (Version 1)
Quarter: 2024Q3

REPORT INFORMATION
  Report Type: Report from Study
  Country: US (occurrence: US)
  Receive Date: 20240920
  Receipt Date: 20240920
  Transmission Date: 20241017
  Serious: Yes (Hospitalization)
  Sender: RECORDATI
  Company Number: US-RECORDATI RARE DISEASE INC.-2024007199

PATIENT

DRUGS (6)
  1. CYSTADANE [Suspect]
     Active Substance: BETAINE
     Indication: Homocystinuria
     Dosage: 1 DOSAGE FORM (SCOOP), TID
     Route: 048
     Dates: start: 20221122
  2. CREATININE [Concomitant]
     Active Substance: CREATININE
     Indication: Product used for unknown indication
     Dosage: UNK
  3. GLYCINE [Concomitant]
     Active Substance: GLYCINE
     Indication: Product used for unknown indication
     Dosage: UNK
  4. ARGININE [Concomitant]
     Active Substance: ARGININE
     Indication: Product used for unknown indication
     Dosage: UNK
  5. OXCARBAZEPINE [Concomitant]
     Active Substance: OXCARBAZEPINE
     Indication: Product used for unknown indication
     Dosage: UNK
     Dates: end: 2024
  6. OXCARBAZEPINE [Concomitant]
     Active Substance: OXCARBAZEPINE
     Dosage: DOSE INCREASED
     Dates: start: 2024

REACTIONS (4)
  - Pharyngitis streptococcal [Unknown]
  - Seizure [Unknown]
  - Off label use [Recovered/Resolved]
  - Product dose omission issue [Recovered/Resolved]

NARRATIVE: CASE EVENT DATE: 20221122
